FAERS Safety Report 5964596-0 (Version None)
Quarter: 2008Q4

REPORT INFORMATION
  Report Type: 
  Country: None (occurrence: None)
  Receive Date: 20081122
  Receipt Date: 20081122
  Transmission Date: 20090506
  Serious: Yes (Other)
  Sender: FDA-Public Use
  Company Number: None

PATIENT
  Sex: Male
  Weight: 71.6683 kg

DRUGS (1)
  1. COLGATE TARTAR PROTECTION [Suspect]
     Indication: DENTAL DISORDER PROPHYLAXIS
     Dosage: ABOUT 3/8 INCH TWICE DAILY
     Dates: start: 20080901

REACTIONS (3)
  - BURNING SENSATION [None]
  - LIP HAEMORRHAGE [None]
  - PRODUCT QUALITY ISSUE [None]
